FAERS Safety Report 6744310-1 (Version None)
Quarter: 2010Q2

REPORT INFORMATION
  Report Type: 
  Country: None (occurrence: None)
  Receive Date: 20100527
  Receipt Date: 20100525
  Transmission Date: 20101027
  Serious: Yes (Hospitalization)
  Sender: FDA-Public Use
  Company Number: RS-MERCK-1005USA03852

PATIENT
  Age: 63 Year
  Sex: Female
  Weight: 53 kg

DRUGS (7)
  1. INVANZ [Suspect]
     Indication: THERAPEUTIC PROCEDURE
     Route: 042
     Dates: start: 20100511, end: 20100516
  2. ALBUMIN HUMAN [Concomitant]
     Route: 065
  3. METOCLOPRAMIDE [Concomitant]
     Route: 065
  4. PYRIDOXINE [Concomitant]
     Route: 065
  5. RANISAN [Concomitant]
     Route: 065
  6. FRAXIPARIN [Concomitant]
     Route: 065
  7. ASCORBIC ACID [Concomitant]
     Route: 065

REACTIONS (2)
  - DIARRHOEA [None]
  - PSEUDOMEMBRANOUS COLITIS [None]
